FAERS Safety Report 8683571 (Version 3)
Quarter: 2013Q1

REPORT INFORMATION
  Report Type: Report from Study
  Country: GB (occurrence: GB)
  Receive Date: 20120726
  Receipt Date: 20130311
  Transmission Date: 20140127
  Serious: Yes (Death)
  Sender: FDA-Public Use
  Company Number: GB-UCBSA-062013

PATIENT
  Age: 63 Year
  Sex: Female
  Weight: 51 kg

DRUGS (13)
  1. CERTOLIZUMAB [Suspect]
     Indication: RHEUMATOID ARTHRITIS
     Route: 058
     Dates: start: 20100709, end: 20101115
  2. AMITRIPTYLINE [Concomitant]
  3. OMEPRAZOLE [Concomitant]
  4. SALBUTAMOL [Concomitant]
     Dosage: MDI PRN; UNKNOWN DOSE
  5. CO-DYDRAMOL [Concomitant]
     Dosage: PRN; UNKNOWN DOSE
  6. DIHYDROCODEINE [Concomitant]
     Dosage: PRN; UNKNOWN DOSE
  7. IRON SULPHATE [Concomitant]
     Dosage: 200 MG BD
  8. GLIPIZIDE [Concomitant]
  9. METFORMIN [Concomitant]
     Dosage: MODIFIED RELEASE (MR)
  10. PIOGLITAZONE [Concomitant]
  11. SERTRALINE [Concomitant]
  12. TIOTROPIUM [Concomitant]
     Dates: start: 20120110
  13. SERETIDE [Concomitant]
     Dosage: 250 MDI 2 PUFFS BD VIA AEROCHAMBER

REACTIONS (1)
  - Non-small cell lung cancer metastatic [Fatal]
